FAERS Safety Report 19068248 (Version 1)
Quarter: 2021Q1

REPORT INFORMATION
  Report Type: Spontaneous
  Country: US (occurrence: US)
  Receive Date: 20210326
  Receipt Date: 20210326
  Transmission Date: 20210420
  Serious: Yes (Hospitalization)
  Sender: FDA-Public Use
  Company Number: None

PATIENT
  Sex: Female

DRUGS (1)
  1. PIQRAY [Suspect]
     Active Substance: ALPELISIB
     Indication: BREAST CANCER FEMALE
     Dosage: ?          OTHER DOSE:1 (200MG) +1 (50MG;?
     Route: 048
     Dates: start: 20210223

REACTIONS (6)
  - Blood glucose increased [None]
  - Diarrhoea [None]
  - Renal failure [None]
  - Kidney infection [None]
  - Dehydration [None]
  - Nausea [None]
